FAERS Safety Report 21219702 (Version 1)
Quarter: 2022Q3

REPORT INFORMATION
  Report Type: Spontaneous
  Country: US (occurrence: US)
  Receive Date: 20220817
  Receipt Date: 20220817
  Transmission Date: 20221027
  Serious: Yes (Other)
  Sender: FDA-Public Use
  Company Number: US-PFIZER INC-PV202200043956

PATIENT
  Age: 68 Year
  Sex: Female

DRUGS (2)
  1. LORBRENA [Suspect]
     Active Substance: LORLATINIB
     Dosage: UNK
     Route: 048
  2. LORBRENA [Suspect]
     Active Substance: LORLATINIB
     Dosage: 25 MG, 3X/DAY
     Route: 048

REACTIONS (1)
  - Renal impairment [Unknown]
